FAERS Safety Report 11165917 (Version 1)
Quarter: 2015Q2

REPORT INFORMATION
  Report Type: Spontaneous
  Country: IT (occurrence: IT)
  Receive Date: 20150604
  Receipt Date: 20150604
  Transmission Date: 20150821
  Serious: Yes (Other)
  Sender: FDA-Public Use
  Company Number: IT-EISAI MEDICAL RESEARCH-EC-2015-004503

PATIENT
  Age: 74 Year
  Sex: Female
  Weight: 45 kg

DRUGS (1)
  1. HALAVEN [Suspect]
     Active Substance: ERIBULIN MESYLATE
     Indication: BREAST CANCER
     Route: 041
     Dates: start: 20150203

REACTIONS (2)
  - Anaemia [Recovered/Resolved]
  - Neutropenia [Recovered/Resolved]

NARRATIVE: CASE EVENT DATE: 20150210
